FAERS Safety Report 11217371 (Version 2)
Quarter: 2015Q3

REPORT INFORMATION
  Report Type: Spontaneous
  Country: CA (occurrence: CA)
  Receive Date: 20150625
  Receipt Date: 20150930
  Transmission Date: 20151125
  Serious: Yes (Other)
  Sender: FDA-Public Use
  Company Number: CA-ROCHE-1598847

PATIENT
  Age: 59 Year
  Sex: Female

DRUGS (7)
  1. OXYCODONE HYDROCHLORIDE AND ACETAMINOPHEN [Concomitant]
     Active Substance: ACETAMINOPHEN\OXYCODONE HYDROCHLORIDE
  2. PREDNISONE. [Suspect]
     Active Substance: PREDNISONE
     Indication: PRODUCT USED FOR UNKNOWN INDICATION
     Route: 065
  3. SOTALOL. [Concomitant]
     Active Substance: SOTALOL
  4. CELEBREX [Concomitant]
     Active Substance: CELECOXIB
  5. OMEPRAZOLE. [Concomitant]
     Active Substance: OMEPRAZOLE
  6. OMEGA 3 [Concomitant]
     Active Substance: OMEGA-3 FATTY ACIDS
  7. ACTEMRA [Suspect]
     Active Substance: TOCILIZUMAB
     Indication: RHEUMATOID ARTHRITIS
     Route: 058
     Dates: start: 201503

REACTIONS (6)
  - Drug dose omission [Unknown]
  - Impaired healing [Not Recovered/Not Resolved]
  - Limb injury [Recovered/Resolved]
  - Accident [Unknown]
  - Wound [Not Recovered/Not Resolved]
  - Skin atrophy [Unknown]

NARRATIVE: CASE EVENT DATE: 20150610
